FAERS Safety Report 12972482 (Version 1)
Quarter: 2016Q4

REPORT INFORMATION
  Report Type: Report from Study
  Country: KR (occurrence: KR)
  Receive Date: 20161124
  Receipt Date: 20161124
  Transmission Date: 20170207
  Serious: No
  Sender: FDA-Public Use
  Company Number: KR-PROSTRAKAN-2016-KR-0274

PATIENT

DRUGS (10)
  1. DISGREN [Concomitant]
     Indication: CEREBRAL INFARCTION
     Dosage: UNKNOWN
     Route: 065
     Dates: start: 20120524
  2. GRANISETRON [Suspect]
     Active Substance: GRANISETRON
     Indication: PROPHYLAXIS OF NAUSEA AND VOMITING
     Dosage: UNKNOWN
     Route: 062
     Dates: start: 20120601, end: 20120607
  3. ASPIRIN. [Concomitant]
     Active Substance: ASPIRIN
     Indication: CEREBRAL INFARCTION
     Dosage: UNKNOWN
     Route: 065
     Dates: start: 20120524
  4. ANYCOUGH [Concomitant]
     Active Substance: THEOBROMINE
     Indication: PNEUMONIA
     Dosage: UNKNOWN
     Route: 065
     Dates: start: 20120529, end: 20120614
  5. MEIACT [Concomitant]
     Active Substance: CEFDITOREN PIVOXIL
     Indication: PNEUMONIA
     Dosage: UNKNOWN
     Route: 065
     Dates: start: 20120716, end: 20120726
  6. HYTRIN [Concomitant]
     Active Substance: TERAZOSIN HYDROCHLORIDE
     Indication: BENIGN PROSTATIC HYPERPLASIA
     Dosage: UNKNOWN
     Route: 065
     Dates: start: 20120524
  7. SYNATURA [Concomitant]
     Indication: PNEUMONIA
     Dosage: UNKNOWN
     Route: 065
     Dates: start: 20120524, end: 20120614
  8. MACPERAN [Concomitant]
     Active Substance: METOCLOPRAMIDE HYDROCHLORIDE
     Indication: VOMITING
     Dosage: UNKNOWN
     Route: 065
     Dates: start: 20120714, end: 20120726
  9. ETOPOSIDE. [Concomitant]
     Active Substance: ETOPOSIDE
     Indication: PRODUCT USED FOR UNKNOWN INDICATION
     Dosage: UNKNOWN
     Route: 065
     Dates: start: 20120602, end: 20120604
  10. CISPLATIN. [Concomitant]
     Active Substance: CISPLATIN
     Indication: PRODUCT USED FOR UNKNOWN INDICATION
     Dosage: UNKNOWN
     Route: 065
     Dates: start: 20120602, end: 20120604

REACTIONS (3)
  - Nausea [Recovered/Resolved]
  - Cough [Recovered/Resolved]
  - Vomiting [Recovered/Resolved]

NARRATIVE: CASE EVENT DATE: 20120626
